FAERS Safety Report 8958523 (Version 1)
Quarter: 2012Q4

REPORT INFORMATION
  Report Type: Spontaneous
  Country: US (occurrence: None)
  Receive Date: 20121205
  Receipt Date: 20121205
  Transmission Date: 20130627
  Serious: Yes (Disabling, Other)
  Sender: FDA-Public Use
  Company Number: None

PATIENT
  Age: 46 Year
  Sex: Female
  Weight: 60.33 kg

DRUGS (2)
  1. ARAVA [Suspect]
     Indication: PSORIASIS
     Dates: start: 201208
  2. ARAVA [Suspect]
     Indication: PSORIASIS
     Dates: start: 201211

REACTIONS (3)
  - Gastrointestinal disorder [None]
  - Quality of life decreased [None]
  - Drug dependence [None]
